FAERS Safety Report 7224562-4 (Version None)
Quarter: 2011Q1

REPORT INFORMATION
  Report Type: 
  Country: None (occurrence: None)
  Receive Date: 20110113
  Receipt Date: 20110103
  Transmission Date: 20110831
  Serious: Yes (Hospitalization)
  Sender: FDA-Public Use
  Company Number: FR-JNJFOC-20110102740

PATIENT
  Sex: Male

DRUGS (9)
  1. LOXEN [Concomitant]
  2. FLUINDIONE [Interacting]
     Indication: PRODUCT USED FOR UNKNOWN INDICATION
     Route: 065
  3. SULFARLEM [Concomitant]
  4. ETANERCEPT [Concomitant]
  5. XANAX [Concomitant]
  6. TRIMEBUTINE [Concomitant]
  7. IMOVANE [Concomitant]
  8. TOPALGIC [Suspect]
     Indication: ARTHRALGIA
     Route: 048
  9. PROFENID [Interacting]
     Indication: ARTHRALGIA
     Route: 048

REACTIONS (9)
  - RENAL FAILURE ACUTE [None]
  - DRUG INTERACTION [None]
  - EPISTAXIS [None]
  - HAEMATURIA [None]
  - SUBARACHNOID HAEMORRHAGE [None]
  - DRUG INEFFECTIVE [None]
  - GINGIVAL BLEEDING [None]
  - ASTHENIA [None]
  - INTERNATIONAL NORMALISED RATIO INCREASED [None]
